FAERS Safety Report 18044840 (Version 1)
Quarter: 2020Q3

REPORT INFORMATION
  Report Type: Spontaneous
  Country: CN (occurrence: CN)
  Receive Date: 20200720
  Receipt Date: 20200720
  Transmission Date: 20201103
  Serious: Yes (Other)
  Sender: FDA-Public Use
  Company Number: CN-CHEPLA-C20202128

PATIENT
  Age: 26 Year
  Sex: Male

DRUGS (9)
  1. AZITHROMYCIN ANHYDROUS. [Suspect]
     Active Substance: AZITHROMYCIN ANHYDROUS
     Indication: COXSACKIE VIRUS TEST POSITIVE
     Dates: start: 202001
  2. GANCICLOVIR. [Suspect]
     Active Substance: GANCICLOVIR
     Indication: ENTEROVIRUS TEST POSITIVE
     Dates: start: 202001
  3. AZITHROMYCIN ANHYDROUS. [Suspect]
     Active Substance: AZITHROMYCIN ANHYDROUS
     Indication: MYCOPLASMA TEST POSITIVE
     Dates: start: 202001
  4. GANCICLOVIR. [Suspect]
     Active Substance: GANCICLOVIR
     Indication: COXSACKIE VIRUS TEST POSITIVE
     Dates: start: 202001
  5. DA?EPOCH? R [Suspect]
     Active Substance: CYCLOPHOSPHAMIDE\DOXORUBICIN\ETOPOSIDE\PREDNISONE\RITUXIMAB\VINCRISTINE
     Indication: PRIMARY MEDIASTINAL LARGE B-CELL LYMPHOMA
     Dates: start: 20200112, end: 20200117
  6. GANCICLOVIR. [Suspect]
     Active Substance: GANCICLOVIR
     Indication: MYCOPLASMA TEST POSITIVE
     Dates: start: 202001
  7. AZITHROMYCIN ANHYDROUS. [Suspect]
     Active Substance: AZITHROMYCIN ANHYDROUS
     Indication: ENTEROVIRUS TEST POSITIVE
     Dates: start: 202001
  8. OSELTAMIVIR [Suspect]
     Active Substance: OSELTAMIVIR
     Indication: INFECTION PROPHYLAXIS
     Dates: start: 202001
  9. POSACONAZOLE [Suspect]
     Active Substance: POSACONAZOLE
     Indication: INFECTION PROPHYLAXIS
     Dates: start: 202001

REACTIONS (4)
  - COVID-19 [Recovered/Resolved]
  - Oropharyngeal pain [Unknown]
  - Product use in unapproved indication [Unknown]
  - Nausea [Unknown]

NARRATIVE: CASE EVENT DATE: 20200127
